FAERS Safety Report 22058958 (Version 1)
Quarter: 2023Q1

REPORT INFORMATION
  Report Type: Spontaneous
  Country: US (occurrence: US)
  Receive Date: 20230303
  Receipt Date: 20230303
  Transmission Date: 20230418
  Serious: Yes (Other)
  Sender: FDA-Public Use
  Company Number: US-drreddys-LIT/USA/23/0161998

PATIENT
  Age: 51 Year
  Sex: Male

DRUGS (8)
  1. TACROLIMUS [Suspect]
     Active Substance: TACROLIMUS
     Indication: Immunosuppressant drug therapy
  2. TACROLIMUS [Suspect]
     Active Substance: TACROLIMUS
     Dosage: DOSE WAS REDUCED
  3. SIROLIMUS [Suspect]
     Active Substance: SIROLIMUS
     Indication: Immunosuppressant drug therapy
  4. PREDNISONE [Suspect]
     Active Substance: PREDNISONE
     Indication: Immunosuppressant drug therapy
  5. PREDNISONE [Suspect]
     Active Substance: PREDNISONE
     Dosage: TAPERED TO 5MG EVERY OTHER DAY
  6. PREDNISOLONE [Suspect]
     Active Substance: PREDNISOLONE
     Indication: Immunosuppressant drug therapy
     Dosage: 5 MG/DAY FOR 4 WEEKS
  7. PREDNISOLONE [Suspect]
     Active Substance: PREDNISOLONE
     Dosage: 2.5MG REDUCTION EVERY 4 WEEKS TO ACHIEVE A MAINTENANCE DOSE OF 10 MG/DAY.
  8. DAPSONE [Suspect]
     Active Substance: DAPSONE
     Indication: Immunosuppressant drug therapy

REACTIONS (6)
  - Neutropenia [Not Recovered/Not Resolved]
  - Cytomegalovirus viraemia [Recovering/Resolving]
  - Nocardiosis [Recovering/Resolving]
  - Pneumonia pseudomonal [Recovering/Resolving]
  - Clostridium difficile colitis [Recovering/Resolving]
  - Norovirus infection [Unknown]
